FAERS Safety Report 8903478 (Version 1)
Quarter: 2012Q4

REPORT INFORMATION
  Report Type: 
  Country: US (occurrence: US)
  Receive Date: 20121113
  Receipt Date: 20121113
  Transmission Date: 20130627
  Serious: Yes (Other)
  Sender: FDA-Public Use
  Company Number: US-PURDUE-USA-2012-0095447

PATIENT
  Sex: Female

DRUGS (3)
  1. BUTRANS [Suspect]
     Indication: PAIN
     Dosage: 10 mcg, q1h
     Route: 062
     Dates: start: 201208
  2. VICODIN [Concomitant]
     Indication: ANALGESIC THERAPY
     Dosage: 1 tablet, tid
     Route: 048
     Dates: start: 201209
  3. VICODIN [Concomitant]
     Indication: BREAKTHROUGH PAIN

REACTIONS (2)
  - Spondyloarthropathy [Not Recovered/Not Resolved]
  - Pain [Unknown]
